FAERS Safety Report 4831341-1 (Version None)
Quarter: 2005Q4

REPORT INFORMATION
  Report Type: 
  Country: None (occurrence: None)
  Receive Date: 20051116
  Receipt Date: 20051107
  Transmission Date: 20060501
  Serious: Yes (Other)
  Sender: FDA-Public Use
  Company Number: GXKR2005US01920

PATIENT
  Age: 48 Year
  Sex: Female
  Weight: 47 kg

DRUGS (5)
  1. RIFAMPICIN [Suspect]
     Indication: PERITONEAL TUBERCULOSIS
     Dosage: 600 MG, QD
  2. FLUCONAZOLE [Suspect]
     Dosage: 200 MG, QD
  3. CASPOFUNGIN(CASPOFUNGIN) [Suspect]
     Indication: PERITONEAL TUBERCULOSIS
     Dosage: 70 MG ON THE FIRST DAY, THEN 50 MG/D, INTRAVENOUS
     Route: 042
  4. IMIPENEM (IMIPENEM) [Suspect]
     Dosage: INTRAVENOUS
     Route: 042
  5. CILASTATIN (CILASTATIN) [Suspect]
     Dosage: INTRAVENOUS
     Route: 042

REACTIONS (7)
  - CANDIDIASIS [None]
  - DRUG EFFECT DECREASED [None]
  - DRUG INEFFECTIVE [None]
  - DRUG INTERACTION [None]
  - FUNGAEMIA [None]
  - NEUTROPENIA [None]
  - RASH ERYTHEMATOUS [None]
